FAERS Safety Report 5325315-4 (Version None)
Quarter: 2007Q2

REPORT INFORMATION
  Report Type: 
  Country: None (occurrence: None)
  Receive Date: 20070515
  Receipt Date: 20070508
  Transmission Date: 20071010
  Serious: Yes (Disabling, Other)
  Sender: FDA-Public Use
  Company Number: CA-ASTRAZENECA-2007UW08801

PATIENT
  Age: 61 Year
  Sex: Female
  Weight: 77 kg

DRUGS (9)
  1. ARIMIDEX [Suspect]
     Indication: BREAST CANCER
     Route: 048
     Dates: start: 20060301, end: 20070201
  2. ARIMIDEX [Suspect]
     Route: 048
     Dates: start: 20070301
  3. ASPIRIN [Concomitant]
  4. HYDRODIURIL [Concomitant]
     Indication: HYPERTENSION
     Dates: start: 19980601
  5. ALTACE [Concomitant]
     Indication: HYPERTENSION
     Dates: start: 20000601
  6. LIPITOR [Concomitant]
     Indication: LIPIDS INCREASED
     Dates: start: 20010601
  7. VITAMIN D [Concomitant]
     Indication: PROPHYLAXIS
  8. CALCIUM CHLORIDE [Concomitant]
     Indication: PROPHYLAXIS
  9. GLUCOSAMINE W/CHONDROITIN [Concomitant]
     Indication: ARTHRALGIA

REACTIONS (6)
  - ARTHRALGIA [None]
  - CORNEAL EROSION [None]
  - DRY EYE [None]
  - EYE PAIN [None]
  - HOT FLUSH [None]
  - OCULAR HYPERAEMIA [None]
